FAERS Safety Report 5177176-4 (Version None)
Quarter: 2006Q4

REPORT INFORMATION
  Report Type: 
  Country: None (occurrence: None)
  Receive Date: 20061218
  Receipt Date: 20061208
  Transmission Date: 20070319
  Serious: Yes (Disabling, Other)
  Sender: FDA-Public Use
  Company Number: GB-BRISTOL-MYERS SQUIBB COMPANY-13607262

PATIENT
  Sex: Male

DRUGS (1)
  1. SUSTIVA [Suspect]
     Indication: HIV INFECTION
     Dosage: REDUCED TO 400MG DAILY
     Route: 048
     Dates: start: 20060929

REACTIONS (2)
  - DRUG LEVEL INCREASED [None]
  - NERVOUS SYSTEM DISORDER [None]
